FAERS Safety Report 11647144 (Version 2)
Quarter: 2017Q4

REPORT INFORMATION
  Report Type: Spontaneous
  Country: US (occurrence: US)
  Receive Date: 20151021
  Receipt Date: 20171117
  Transmission Date: 20180320
  Serious: Yes (Other)
  Sender: FDA-Public Use
  Company Number: US-AMGEN-USASP2015109621

PATIENT
  Age: 74 Year
  Sex: Female

DRUGS (1)
  1. PROLIA [Suspect]
     Active Substance: DENOSUMAB
     Indication: OSTEOPOROSIS POSTMENOPAUSAL
     Dosage: UNK
     Route: 065
     Dates: start: 2013

REACTIONS (3)
  - Eyelid ptosis [Unknown]
  - Post procedural infection [Not Recovered/Not Resolved]
  - Abdominal operation [Unknown]

NARRATIVE: CASE EVENT DATE: 2013
